FAERS Safety Report 9997724 (Version 1)
Quarter: 2014Q1

REPORT INFORMATION
  Report Type: Spontaneous
  Country: US (occurrence: US)
  Receive Date: 20140311
  Receipt Date: 20140311
  Transmission Date: 20141002
  Serious: No
  Sender: FDA-Public Use
  Company Number: US-PFIZER INC-2014068435

PATIENT
  Age: 43 Year
  Sex: Male
  Weight: 95.24 kg

DRUGS (2)
  1. PROTONIX [Suspect]
     Dosage: 40 MG, UNK
     Dates: start: 2013
  2. LISINOPRIL [Concomitant]
     Indication: HYPERTENSION
     Dosage: 20 MG, DAILY

REACTIONS (1)
  - Dizziness [Unknown]
